FAERS Safety Report 12180215 (Version 6)
Quarter: 2016Q2

REPORT INFORMATION
  Report Type: Report from Study
  Country: US (occurrence: US)
  Receive Date: 20160315
  Receipt Date: 20160607
  Transmission Date: 20160815
  Serious: Yes (Hospitalization, Other)
  Sender: FDA-Public Use
  Company Number: US-GILEAD-2016-0203203

PATIENT
  Age: 73 Year
  Sex: Female

DRUGS (2)
  1. AMBRISENTAN [Suspect]
     Active Substance: AMBRISENTAN
     Indication: PRODUCT USED FOR UNKNOWN INDICATION
     Dosage: 5 MG, UNK
     Route: 065
     Dates: start: 20120305
  2. NA [Concomitant]
     Active Substance: SODIUM
     Indication: PAIN

REACTIONS (15)
  - Knee arthroplasty [Unknown]
  - Catheterisation cardiac abnormal [Unknown]
  - Chronic obstructive pulmonary disease [Unknown]
  - Arthritis [Unknown]
  - Fatigue [Unknown]
  - Dyspnoea [Unknown]
  - Thrombosis [Unknown]
  - Catheterisation cardiac [Recovered/Resolved]
  - Emphysema [Unknown]
  - Pulmonary arterial pressure increased [Unknown]
  - False positive investigation result [Unknown]
  - Pulmonary fibrosis [Unknown]
  - Road traffic accident [Unknown]
  - Oxygen saturation decreased [Unknown]
  - Rotator cuff syndrome [Unknown]

NARRATIVE: CASE EVENT DATE: 201306
